FAERS Safety Report 4961673-8 (Version None)
Quarter: 2006Q2

REPORT INFORMATION
  Report Type: 
  Country: None (occurrence: None)
  Receive Date: 20060404
  Receipt Date: 20060323
  Transmission Date: 20061013
  Serious: Yes (Other)
  Sender: FDA-Public Use
  Company Number: US-JNJFOC-20060103212

PATIENT
  Sex: Female
  Weight: 89 kg

DRUGS (4)
  1. REMICADE [Suspect]
     Indication: RHEUMATOID ARTHRITIS
     Dosage: NUMBER OF PRIOR INFLIXIMAB INFUSIONS IS 4 PLUS.
     Route: 042
  2. PREDNISONE [Concomitant]
  3. NSAID'S [Concomitant]
  4. METHOTREXATE [Concomitant]

REACTIONS (6)
  - ABASIA [None]
  - AMNIOTIC FLUID VOLUME DECREASED [None]
  - DRUG EXPOSURE DURING PREGNANCY [None]
  - PREGNANCY [None]
  - PREMATURE LABOUR [None]
  - RHEUMATOID ARTHRITIS [None]
